FAERS Safety Report 6364211-0 (Version None)
Quarter: 2009Q3

REPORT INFORMATION
  Report Type: 
  Country: None (occurrence: None)
  Receive Date: 20090919
  Receipt Date: 20090817
  Transmission Date: 20100115
  Serious: No
  Sender: FDA-Public Use
  Company Number: PR-ABBOTT-09P-131-0586515-00

PATIENT
  Sex: Female
  Weight: 69.008 kg

DRUGS (4)
  1. HUMIRA [Suspect]
     Indication: RHEUMATOID ARTHRITIS
     Route: 058
  2. METHOTREXATE [Concomitant]
     Indication: RHEUMATOID ARTHRITIS
     Route: 048
  3. LODINE [Concomitant]
     Indication: RHEUMATOID ARTHRITIS
     Dosage: 500 MG TABLETS
     Route: 048
  4. PREDNISONE [Concomitant]
     Indication: RHEUMATOID ARTHRITIS
     Dosage: 5 MG TABLETS
     Route: 048

REACTIONS (1)
  - CONTUSION [None]
